FAERS Safety Report 15278862 (Version 1)
Quarter: 2018Q3

REPORT INFORMATION
  Report Type: Spontaneous
  Country: DE (occurrence: DE)
  Receive Date: 20180815
  Receipt Date: 20180815
  Transmission Date: 20181010
  Serious: Yes (Other)
  Sender: FDA-Public Use
  Company Number: DE-TEVA-2018-DE-939088

PATIENT
  Sex: Female

DRUGS (3)
  1. TAMOXIFEN [Suspect]
     Active Substance: TAMOXIFEN
     Dosage: UNKNOWN
     Route: 048
     Dates: start: 201409, end: 201409
  2. TRASTUZUMAB. [Concomitant]
     Active Substance: TRASTUZUMAB
     Route: 065
  3. ANASTROZOLE. [Suspect]
     Active Substance: ANASTROZOLE
     Indication: BREAST CANCER FEMALE
     Dosage: UNKNOWN
     Route: 048
     Dates: start: 200807, end: 201307

REACTIONS (3)
  - Metastases to liver [Unknown]
  - Arthropathy [Unknown]
  - Disease progression [Unknown]

NARRATIVE: CASE EVENT DATE: 201308
